FAERS Safety Report 4386210-0 (Version None)
Quarter: 2004Q2

REPORT INFORMATION
  Report Type: 
  Country: None (occurrence: None)
  Receive Date: 20040623
  Receipt Date: 20040603
  Transmission Date: 20050107
  Serious: Yes (Life-Threatening, Hospitalization)
  Sender: FDA-Public Use
  Company Number: 2004AP02966

PATIENT
  Age: 64 Year
  Sex: Female

DRUGS (5)
  1. TENORMIN [Suspect]
     Dosage: 25 MG DAILY PO
     Route: 048
     Dates: end: 20040526
  2. BAYLOTENSIN [Suspect]
     Dosage: 10 MG DAILY PO
     Route: 048
     Dates: end: 20040526
  3. JUVELA [Suspect]
     Dosage: 200 MG DAILY PO
     Route: 048
     Dates: end: 20040526
  4. PROMAC [Suspect]
     Dosage: 1 DF DAILY PO
     Route: 048
     Dates: end: 20040526
  5. COBATENSIN [Suspect]
     Dates: end: 20040526

REACTIONS (1)
  - HEPATITIS FULMINANT [None]
